FAERS Safety Report 6142084 (Version 6)
Quarter: 2020Q3

REPORT INFORMATION
  Report Type: Report from Study
  Country: US (occurrence: US)
  Receive Date: 20061005
  Receipt Date: 20070301
  Transmission Date: 20201105
  Serious: Yes (Hospitalization)
  Sender: FDA-Public Use
  Company Number: US-ROCHE-465342

PATIENT
  Age: 68 Year
  Sex: Female
  Weight: 99 kg

DRUGS (6)
  1. UNSPECIFIED INGREDIENT [Concomitant]
     Active Substance: UNSPECIFIED INGREDIENT
     Dosage: DRUG REPORTED AS OCCUVITE.
     Dates: start: 20040615
  2. OSCAL [Concomitant]
     Active Substance: CALCIUM CARBONATE
     Indication: OSTEOPOROSIS POSTMENOPAUSAL
     Route: 048
     Dates: start: 20060725, end: 20060917
  3. ADVIL [Concomitant]
     Active Substance: IBUPROFEN
     Indication: OSTEOARTHRITIS
     Dates: start: 20000615, end: 20060917
  4. GLIPIZIDE. [Concomitant]
     Active Substance: GLIPIZIDE
     Dates: start: 19920615
  5. RISEDRONIC ACID [Suspect]
     Active Substance: RISEDRONIC ACID
     Indication: OSTEOPOROSIS POSTMENOPAUSAL
     Route: 048
  6. IBANDRONIC ACID. [Suspect]
     Active Substance: IBANDRONIC ACID
     Indication: OSTEOPOROSIS POSTMENOPAUSAL
     Route: 048
     Dates: start: 20060725, end: 20060825

REACTIONS (1)
  - Small intestinal obstruction [Recovered/Resolved]

NARRATIVE: CASE EVENT DATE: 20060918
